FAERS Safety Report 8838822 (Version 1)
Quarter: 2012Q4

REPORT INFORMATION
  Report Type: 
  Country: GB (occurrence: GB)
  Receive Date: 20121014
  Receipt Date: 20121014
  Transmission Date: 20130627
  Serious: Yes (Other)
  Sender: FDA-Public Use
  Company Number: GB-TEVA-363145ISR

PATIENT
  Age: 55 Year
  Sex: Female
  Weight: 82.6 kg

DRUGS (5)
  1. FLUCONAZOLE [Suspect]
     Indication: VULVOVAGINAL CANDIDIASIS
     Route: 048
     Dates: start: 20120817, end: 20120908
  2. LORATADINE [Concomitant]
     Indication: URTICARIA
     Route: 048
     Dates: start: 20120308
  3. METOCLOPRAMIDE [Concomitant]
     Indication: NAUSEA
     Dosage: Prn
     Route: 048
     Dates: start: 20120529
  4. PARACETAMOL [Concomitant]
     Indication: PAIN
     Route: 048
     Dates: start: 20110308
  5. TRAMADOL [Concomitant]
     Indication: PAIN
     Route: 048
     Dates: start: 20110224

REACTIONS (3)
  - Mouth ulceration [Recovering/Resolving]
  - Gingival ulceration [Recovering/Resolving]
  - Oral pain [Recovering/Resolving]
